FAERS Safety Report 15963437 (Version 1)
Quarter: 2019Q1

REPORT INFORMATION
  Report Type: Spontaneous
  Country: US (occurrence: US)
  Receive Date: 20190214
  Receipt Date: 20190214
  Transmission Date: 20190417
  Serious: Yes (Hospitalization, Disabling, Other)
  Sender: FDA-Public Use
  Company Number: US-ALLERGAN-1809929US

PATIENT
  Age: 59 Year
  Sex: Female

DRUGS (1)
  1. OZURDEX [Suspect]
     Active Substance: DEXAMETHASONE
     Indication: UVEITIS
     Dosage: 0.7 MG, SINGLE
     Route: 031
     Dates: start: 20180214, end: 20180214

REACTIONS (4)
  - Visual impairment [Unknown]
  - Eye pain [Unknown]
  - Endophthalmitis [Not Recovered/Not Resolved]
  - Vitreous floaters [Unknown]

NARRATIVE: CASE EVENT DATE: 20180216
